FAERS Safety Report 23302940 (Version 1)
Quarter: 2023Q4

REPORT INFORMATION
  Report Type: Spontaneous
  Country: US (occurrence: US)
  Receive Date: 20231215
  Receipt Date: 20231215
  Transmission Date: 20240109
  Serious: No
  Sender: FDA-Public Use
  Company Number: US-PRIMUS-2023-US-041212

PATIENT
  Age: 54 Year
  Sex: Female

DRUGS (11)
  1. CLOBETASOL [Suspect]
     Active Substance: CLOBETASOL
     Dates: start: 20210616
  2. TREMFYA [Suspect]
     Active Substance: GUSELKUMAB
  3. FLUOCINONIDE [Suspect]
     Active Substance: FLUOCINONIDE
     Dates: start: 20211101, end: 20220411
  4. TRIAMCINOLONE [Suspect]
     Active Substance: TRIAMCINOLONE
     Dates: end: 20211101
  5. HYDROXYZINE [Suspect]
     Active Substance: HYDROXYZINE HYDROCHLORIDE
     Dates: start: 20220307
  6. SKYRIZI [Suspect]
     Active Substance: RISANKIZUMAB-RZAA
     Dates: start: 20220613, end: 20230417
  7. CLOBETASOL PROPIONATE [Suspect]
     Active Substance: CLOBETASOL PROPIONATE
     Indication: Psoriasis
     Route: 061
     Dates: start: 20210728
  8. TALTZ [Suspect]
     Active Substance: IXEKIZUMAB
     Route: 065
     Dates: start: 20161121, end: 20210410
  9. DUOBRII [Suspect]
     Active Substance: HALOBETASOL PROPIONATE\TAZAROTENE
     Dates: start: 20190307
  10. BRYHALI [Suspect]
     Active Substance: HALOBETASOL PROPIONATE
     Dates: start: 20200707
  11. KEFLEX [Suspect]
     Active Substance: CEPHALEXIN
     Dates: start: 20210616

REACTIONS (4)
  - Drug ineffective [Not Recovered/Not Resolved]
  - Condition aggravated [Not Recovered/Not Resolved]
  - Liver function test increased [Unknown]
  - Pruritus [Unknown]
